FAERS Safety Report 6828344-4 (Version None)
Quarter: 2010Q3

REPORT INFORMATION
  Report Type: 
  Country: None (occurrence: None)
  Receive Date: 20100708
  Receipt Date: 20100708
  Transmission Date: 20110219
  Serious: Yes (Other)
  Sender: FDA-Public Use
  Company Number: None

PATIENT
  Age: 38 Year
  Sex: Female
  Weight: 69.8539 kg

DRUGS (2)
  1. GIANVI 3MG/0.02MG TEVA [Suspect]
     Indication: ACNE
     Dosage: ONE PER DAY PILL PACK PO
     Route: 048
     Dates: start: 20100705, end: 20100707
  2. GIANVI 3MG/0.02MG TEVA [Suspect]
     Indication: PREMENSTRUAL SYNDROME
     Dosage: ONE PER DAY PILL PACK PO
     Route: 048
     Dates: start: 20100705, end: 20100707

REACTIONS (5)
  - ABDOMINAL DISTENSION [None]
  - DIZZINESS [None]
  - HEADACHE [None]
  - PRODUCT SUBSTITUTION ISSUE [None]
  - WEIGHT INCREASED [None]
